FAERS Safety Report 6578227-2 (Version None)
Quarter: 2010Q1

REPORT INFORMATION
  Report Type: 
  Country: None (occurrence: None)
  Receive Date: 20100211
  Receipt Date: 20100209
  Transmission Date: 20100710
  Serious: Yes (Congenital Anomaly)
  Sender: FDA-Public Use
  Company Number: A0684505A

PATIENT
  Sex: Male

DRUGS (7)
  1. PAXIL [Suspect]
     Indication: PANIC ATTACK
     Dosage: 20MG PER DAY
     Dates: start: 19980101, end: 20030701
  2. PAROXETINE HYDROCHLORIDE [Suspect]
     Indication: PANIC ATTACK
     Dosage: 20MG PER DAY
     Dates: start: 20030917, end: 20050901
  3. HUMULIN R [Concomitant]
     Dates: start: 20030101
  4. VITAMIN TAB [Concomitant]
  5. TYLENOL-500 [Concomitant]
  6. UNISOM [Concomitant]
  7. VITAMIN B6 [Concomitant]

REACTIONS (2)
  - DRUG EXPOSURE DURING PREGNANCY [None]
  - VENTRICULAR SEPTAL DEFECT [None]
